FAERS Safety Report 5644768-5 (Version None)
Quarter: 2008Q1

REPORT INFORMATION
  Report Type: 
  Country: None (occurrence: None)
  Receive Date: 20080229
  Receipt Date: 20070726
  Transmission Date: 20080703
  Serious: No
  Sender: FDA-Public Use
  Company Number: A0666514A

PATIENT
  Age: 40 Year
  Sex: Female

DRUGS (2)
  1. VALTREX [Suspect]
     Indication: GENITAL HERPES
     Dosage: 250MG PER DAY
     Route: 048
     Dates: start: 20070601
  2. FIORICET [Concomitant]

REACTIONS (6)
  - DIZZINESS [None]
  - FATIGUE [None]
  - HEADACHE [None]
  - LIBIDO DECREASED [None]
  - MENSTRUAL DISORDER [None]
  - THIRST [None]
